FAERS Safety Report 9130984 (Version 1)
Quarter: 2013Q1

REPORT INFORMATION
  Report Type: Spontaneous
  Country: FR (occurrence: FR)
  Receive Date: 20130301
  Receipt Date: 20130301
  Transmission Date: 20140127
  Serious: Yes (Other)
  Sender: FDA-Public Use
  Company Number: FR-PFIZER INC-2013070451

PATIENT
  Age: 68 Year
  Sex: Male

DRUGS (1)
  1. TAHOR [Suspect]
     Dosage: 10 MG, DAILY
     Route: 048

REACTIONS (2)
  - Foreign body aspiration [Recovered/Resolved]
  - Product size issue [Unknown]
